FAERS Safety Report 20135678 (Version 2)
Quarter: 2022Q2

REPORT INFORMATION
  Report Type: Spontaneous
  Country: US (occurrence: US)
  Receive Date: 20211201
  Receipt Date: 20220511
  Transmission Date: 20220720
  Serious: No
  Sender: FDA-Public Use
  Company Number: US-PFIZER INC-202101152434

PATIENT
  Age: 60 Year
  Sex: Male

DRUGS (1)
  1. XELJANZ XR [Suspect]
     Active Substance: TOFACITINIB CITRATE
     Indication: Rheumatoid arthritis
     Dosage: 11 MG, 1X/DAY
     Route: 048
     Dates: start: 202102

REACTIONS (5)
  - Inflammation [Recovering/Resolving]
  - Product dose omission issue [Unknown]
  - Hypertension [Unknown]
  - Stress [Unknown]
  - White coat hypertension [Unknown]
